FAERS Safety Report 21459881 (Version 1)
Quarter: 2022Q4

REPORT INFORMATION
  Report Type: Spontaneous
  Country: US (occurrence: US)
  Receive Date: 20221014
  Receipt Date: 20221014
  Transmission Date: 20230112
  Serious: Yes (Other)
  Sender: FDA-Public Use
  Company Number: US-BRISTOL-MYERS SQUIBB COMPANY-2022-120426

PATIENT
  Age: 69 Year
  Sex: Male

DRUGS (1)
  1. AZACITIDINE [Suspect]
     Active Substance: AZACITIDINE
     Indication: Acute myeloid leukaemia
     Dosage: DOSE : 300MG;     FREQ : QD ON DAYS 1-14 OF EACH 28-DAY TREATMENT CYCLE
     Route: 048
     Dates: start: 20211013

REACTIONS (3)
  - Neutropenia [Unknown]
  - Nausea [Unknown]
  - Off label use [Unknown]
